FAERS Safety Report 7606152-4 (Version None)
Quarter: 2011Q3

REPORT INFORMATION
  Report Type: 
  Country: None (occurrence: None)
  Receive Date: 20110705
  Receipt Date: 20110620
  Transmission Date: 20111222
  Serious: Yes (Disabling, Other)
  Sender: FDA-Public Use
  Company Number: 2011MA007842

PATIENT
  Sex: Female

DRUGS (2)
  1. METOCLOPRAMIDE [Suspect]
     Indication: ABDOMINAL DISTENSION
     Dates: start: 20090401, end: 20090801
  2. METOCLOPRAMIDE [Suspect]
     Indication: DYSPEPSIA
     Dates: start: 20090401, end: 20090801

REACTIONS (7)
  - NERVOUS SYSTEM DISORDER [None]
  - EXTRAPYRAMIDAL DISORDER [None]
  - TARDIVE DYSKINESIA [None]
  - PHYSICAL DISABILITY [None]
  - MULTIPLE INJURIES [None]
  - PAIN [None]
  - ECONOMIC PROBLEM [None]
